APPROVED DRUG PRODUCT: PAROXETINE HYDROCHLORIDE
Active Ingredient: PAROXETINE HYDROCHLORIDE
Strength: EQ 12.5MG BASE
Dosage Form/Route: TABLET, EXTENDED RELEASE;ORAL
Application: A209748 | Product #001 | TE Code: AB
Applicant: PRINSTON PHARMACEUTICAL INC
Approved: Jan 4, 2024 | RLD: No | RS: No | Type: RX